FAERS Safety Report 6342109-1 (Version None)
Quarter: 2009Q3

REPORT INFORMATION
  Report Type: 
  Country: None (occurrence: None)
  Receive Date: 20090903
  Receipt Date: 20090903
  Transmission Date: 20100115
  Serious: Yes (Other)
  Sender: FDA-Public Use
  Company Number: None

PATIENT
  Age: 11 Year
  Sex: Male
  Weight: 40.8237 kg

DRUGS (2)
  1. ADDERALL 30 [Suspect]
     Indication: ABNORMAL BEHAVIOUR
     Dosage: 30 MG ONCE DAILY
     Dates: start: 20061001, end: 20090801
  2. ADDERALL 30 [Suspect]
     Indication: HYPERTENSION
     Dosage: 30 MG ONCE DAILY
     Dates: start: 20061001, end: 20090801

REACTIONS (2)
  - AGGRESSION [None]
  - MOOD SWINGS [None]
